FAERS Safety Report 10854005 (Version 2)
Quarter: 2015Q1

REPORT INFORMATION
  Report Type: Spontaneous
  Country: US (occurrence: US)
  Receive Date: 20150223
  Receipt Date: 20150224
  Transmission Date: 20150721
  Serious: Yes (Hospitalization, Other)
  Sender: FDA-Public Use
  Company Number: US-UCBSA-2014022230

PATIENT
  Age: 31 Year
  Sex: Male
  Weight: 72.57 kg

DRUGS (3)
  1. VIMPAT [Suspect]
     Active Substance: LACOSAMIDE
     Indication: TEMPORAL LOBE EPILEPSY
     Dosage: 50 MG, 2X/DAY (BID)
     Route: 048
     Dates: start: 20141217, end: 201501
  2. VIMPAT [Suspect]
     Active Substance: LACOSAMIDE
     Dosage: 200 MG, 2X/DAY (BID)
     Route: 048
     Dates: start: 201501, end: 201502
  3. KEPPRA XR [Suspect]
     Active Substance: LEVETIRACETAM
     Indication: TEMPORAL LOBE EPILEPSY
     Dosage: 750 MG/2 DAY
     Route: 048
     Dates: end: 20141217

REACTIONS (12)
  - Hallucination [Recovering/Resolving]
  - Suicidal ideation [Recovering/Resolving]
  - Renal failure [Recovering/Resolving]
  - Daydreaming [Recovering/Resolving]
  - Depression [Recovering/Resolving]
  - Seizure [Not Recovered/Not Resolved]
  - Aggression [Recovering/Resolving]
  - Bipolar disorder [Not Recovered/Not Resolved]
  - Amnesia [Recovering/Resolving]
  - Mental disorder [Recovering/Resolving]
  - Feeling abnormal [Not Recovered/Not Resolved]
  - Insomnia [Recovering/Resolving]

NARRATIVE: CASE EVENT DATE: 20141214
